FAERS Safety Report 21843538 (Version 1)
Quarter: 2023Q1

REPORT INFORMATION
  Report Type: Spontaneous
  Country: PL (occurrence: PL)
  Receive Date: 20230110
  Receipt Date: 20230110
  Transmission Date: 20230417
  Serious: Yes (Other)
  Sender: FDA-Public Use
  Company Number: None

PATIENT
  Age: 79 Year
  Sex: Female
  Weight: 56 kg

DRUGS (3)
  1. OXALIPLATIN [Suspect]
     Active Substance: OXALIPLATIN
     Dosage: NO INTERVAL
     Route: 042
     Dates: start: 20220627, end: 20220627
  2. FLUOROURACIL [Suspect]
     Active Substance: FLUOROURACIL
     Dosage: NO INTERVAL
     Route: 042
     Dates: start: 20220627, end: 20220629
  3. FLUOROURACIL [Suspect]
     Active Substance: FLUOROURACIL
     Dosage: NO INTERVAL
     Route: 040
     Dates: start: 20220627, end: 20220628

REACTIONS (1)
  - Neutropenia [Recovered/Resolved with Sequelae]

NARRATIVE: CASE EVENT DATE: 20220711
